FAERS Safety Report 14980061 (Version 1)
Quarter: 2018Q2

REPORT INFORMATION
  Report Type: Spontaneous
  Country: US (occurrence: US)
  Receive Date: 20180606
  Receipt Date: 20180606
  Transmission Date: 20180711
  Serious: Yes (Other)
  Sender: FDA-Public Use
  Company Number: US-VIVIMED-2018SP004042

PATIENT

DRUGS (2)
  1. ZOLPIDEM [Suspect]
     Active Substance: ZOLPIDEM\ZOLPIDEM TARTRATE
     Indication: INSOMNIA
     Dosage: 31.25 MG, UNK
     Route: 048
     Dates: start: 2007
  2. DIPHENHYDRAMINE. [Concomitant]
     Active Substance: DIPHENHYDRAMINE
     Indication: PRODUCT USED FOR UNKNOWN INDICATION
     Dosage: UNK
     Route: 065

REACTIONS (11)
  - Incoherent [Unknown]
  - Disturbance in attention [Unknown]
  - Road traffic accident [Unknown]
  - Lacrimation increased [Unknown]
  - Somnambulism [Unknown]
  - Ocular hyperaemia [None]
  - Balance disorder [Unknown]
  - Lacrimation increased [None]
  - Amnesia [Unknown]
  - Drug level increased [Unknown]
  - Overdose [Unknown]
